FAERS Safety Report 11597405 (Version 1)
Quarter: 2015Q3

REPORT INFORMATION
  Report Type: Spontaneous
  Country: US (occurrence: US)
  Receive Date: 20150916
  Receipt Date: 20150916
  Transmission Date: 20151125
  Serious: No
  Sender: FDA-Public Use
  Company Number: US-ELI_LILLY_AND_COMPANY-US200801004472

PATIENT
  Age: 62 Year
  Sex: Female

DRUGS (5)
  1. ESTIVIN [Concomitant]
  2. CITRACAL [Concomitant]
     Active Substance: CALCIUM CITRATE
  3. CALCIUM CARBONATE. [Concomitant]
     Active Substance: CALCIUM CARBONATE
  4. MULTI-VIT [Concomitant]
     Active Substance: VITAMINS
  5. FORTEO [Suspect]
     Active Substance: TERIPARATIDE
     Indication: OSTEOPOROSIS
     Dates: start: 20071219

REACTIONS (2)
  - Sneezing [Not Recovered/Not Resolved]
  - Oropharyngeal pain [Not Recovered/Not Resolved]

NARRATIVE: CASE EVENT DATE: 200801
